FAERS Safety Report 22291498 (Version 4)
Quarter: 2024Q1

REPORT INFORMATION
  Report Type: Report from Study
  Country: US (occurrence: US)
  Receive Date: 20230506
  Receipt Date: 20240108
  Transmission Date: 20240409
  Serious: Yes (Hospitalization)
  Sender: FDA-Public Use
  Company Number: US-002147023-NVSC2023US101019

PATIENT
  Sex: Female

DRUGS (1)
  1. KISQALI [Suspect]
     Active Substance: RIBOCICLIB
     Indication: Product used for unknown indication
     Dosage: UNK
     Route: 048

REACTIONS (7)
  - Neoplasm malignant [Unknown]
  - Disturbance in attention [Unknown]
  - Full blood count decreased [Unknown]
  - Liver disorder [Unknown]
  - Amnesia [Unknown]
  - Nausea [Unknown]
  - Liver function test abnormal [Unknown]
